FAERS Safety Report 8256845-3 (Version None)
Quarter: 2012Q2

REPORT INFORMATION
  Report Type: 
  Country: None (occurrence: None)
  Receive Date: 20120403
  Receipt Date: 20120330
  Transmission Date: 20120825
  Serious: Yes (Other)
  Sender: FDA-Public Use
  Company Number: US-PFIZER INC-2012045770

PATIENT
  Sex: Female

DRUGS (16)
  1. CALCIUM/MINERALS/VITAMIN D [Concomitant]
     Dosage: 600 MG, 2X/DAY
  2. LABETALOL HYDROCHLORIDE [Concomitant]
     Indication: HYPERTENSION
     Dosage: 400 MG, 2X/DAY
     Dates: end: 20120130
  3. MULTI-VITAMINS [Concomitant]
     Dosage: 1 DF, 1X/DAY
  4. ASCORBIC ACID [Concomitant]
     Dosage: 500 MG, (1 TAB IN AM AFTER MEALS)
  5. LYRICA [Suspect]
     Indication: SCIATICA
     Dosage: 50 MG, 2X/DAY (1 TAB IN AM AND PM)
     Route: 048
  6. CLONAZEPAM [Concomitant]
     Indication: RESTLESS LEGS SYNDROME
     Dosage: 1 MG, 1X/DAY
  7. COENZYME Q10 [Concomitant]
     Dosage: 100 MG, (1 TAB DAILY)
  8. MELOXICAM [Concomitant]
     Indication: ARTHRALGIA
     Dosage: 7.5 MG, 2X/DAY (1 TAB)
     Route: 048
  9. PREDNISONE [Concomitant]
     Dosage: 20 MG, (TAKE 3 TABS AT ONCE DAILY)
     Dates: start: 20120111, end: 20120115
  10. SIMVASTATIN [Concomitant]
     Dosage: 10 MG, (1 TAB AT BEDTIME)
     Dates: start: 20090603
  11. OMEGA 3 PLUS D3 FISH OIL [Concomitant]
     Dosage: UNK (2 TAB DAILY)
  12. LASIX [Concomitant]
     Indication: HYPERTENSION
     Dosage: 40 MG, 1X/DAY
     Dates: start: 20111217
  13. POTASSIUM CHLORIDE [Concomitant]
     Dosage: 20 MEQ, (1 TAB IN AM WITH MEALS)
     Dates: start: 20120131
  14. TYLENOL ARTHRITIS [Concomitant]
     Indication: ARTHRITIS
     Dosage: 500 MG, 2X/DAY, AS NEEDED
  15. ACETYLSALICYLIC ACID [Concomitant]
     Dosage: 81 MG, 1X/DAY
  16. AMLODIPINE BESILATE [Concomitant]
     Indication: HYPERTENSION
     Dosage: 5 MG, TWICE/DAY
     Dates: end: 20111216

REACTIONS (6)
  - HYPERTENSION [None]
  - OEDEMA MOUTH [None]
  - SCIATICA [None]
  - RESTLESS LEGS SYNDROME [None]
  - LIP SWELLING [None]
  - ARTHRALGIA [None]
